FAERS Safety Report 9224128 (Version 1)
Quarter: 2013Q1

REPORT INFORMATION
  Report Type: Spontaneous
  Country: US (occurrence: None)
  Receive Date: 20120830
  Receipt Date: 20120830
  Transmission Date: 20140127
  Serious: Yes (Other)
  Sender: FDA-Public Use
  Company Number: PHEH2011US02235

PATIENT
  Sex: Female

DRUGS (1)
  1. EXFORGE [Suspect]
     Dosage: 320 MG VALS AND 5 MG AMLO, ORAL
     Route: 048

REACTIONS (2)
  - Decreased appetite [None]
  - Muscular weakness [None]
